FAERS Safety Report 21222742 (Version 1)
Quarter: 2022Q3

REPORT INFORMATION
  Report Type: Spontaneous
  Country: FR (occurrence: FR)
  Receive Date: 20220817
  Receipt Date: 20220817
  Transmission Date: 20221027
  Serious: Yes (Hospitalization, Other)
  Sender: FDA-Public Use
  Company Number: None

PATIENT

DRUGS (1)
  1. SUBUTEX [Suspect]
     Active Substance: BUPRENORPHINE HYDROCHLORIDE
     Indication: Product substitution
     Dosage: 24 MILLIGRAM, UNKNOWN
     Route: 042
     Dates: start: 202112, end: 20220103

REACTIONS (4)
  - Intervertebral discitis [Recovered/Resolved]
  - Spinal cord infection [Recovered/Resolved]
  - Product use issue [Recovered/Resolved]
  - Drug use disorder [Recovered/Resolved]

NARRATIVE: CASE EVENT DATE: 20211201
